FAERS Safety Report 23330932 (Version 1)
Quarter: 2023Q4

REPORT INFORMATION
  Report Type: Other
  Country: BE (occurrence: BE)
  Receive Date: 20231222
  Receipt Date: 20231222
  Transmission Date: 20240110
  Serious: Yes (Life-Threatening, Hospitalization)
  Sender: FDA-Public Use
  Company Number: BE-Merck Healthcare KGaA-2023494163

PATIENT
  Age: 64 Year
  Sex: Male

DRUGS (6)
  1. METFORMIN [Suspect]
     Active Substance: METFORMIN HYDROCHLORIDE
     Indication: Type 2 diabetes mellitus
  2. GLICLAZIDE [Concomitant]
     Active Substance: GLICLAZIDE
     Indication: Type 2 diabetes mellitus
  3. METHYLPREDNISOLONE [Concomitant]
     Active Substance: METHYLPREDNISOLONE
     Indication: Cold type haemolytic anaemia
     Dosage: AS MAINTENANCE TREATMENT
  4. METHYLPREDNISOLONE [Concomitant]
     Active Substance: METHYLPREDNISOLONE
     Indication: Haemolytic anaemia
  5. RITUXIMAB [Concomitant]
     Active Substance: RITUXIMAB
     Indication: Cold type haemolytic anaemia
  6. RITUXIMAB [Concomitant]
     Active Substance: RITUXIMAB
     Indication: Haemolytic anaemia

REACTIONS (3)
  - Lactic acidosis [Unknown]
  - Metabolic acidosis [Unknown]
  - Hyperkalaemia [Unknown]
